FAERS Safety Report 6550171-6 (Version None)
Quarter: 2010Q1

REPORT INFORMATION
  Report Type: 
  Country: None (occurrence: None)
  Receive Date: 20100125
  Receipt Date: 20100121
  Transmission Date: 20100710
  Serious: Yes (Other)
  Sender: FDA-Public Use
  Company Number: DE-SANOFI-AVENTIS-2010SA003656

PATIENT
  Age: 69 Year
  Sex: Female

DRUGS (1)
  1. TRENTAL [Suspect]
     Indication: SUDDEN HEARING LOSS
     Route: 048
     Dates: start: 20091101, end: 20100101

REACTIONS (2)
  - FEELING HOT [None]
  - OEDEMA PERIPHERAL [None]
